FAERS Safety Report 26068176 (Version 1)
Quarter: 2025Q4

REPORT INFORMATION
  Report Type: Report from Study
  Country: US (occurrence: US)
  Receive Date: 20251120
  Receipt Date: 20251120
  Transmission Date: 20260117
  Serious: Yes (Hospitalization)
  Sender: ABBVIE
  Company Number: US-ABBVIE-6331820

PATIENT
  Sex: Male

DRUGS (1)
  1. VENCLEXTA [Suspect]
     Active Substance: VENETOCLAX
     Indication: Acute myeloid leukaemia
     Dosage: TAKE 4 TABLETS BY MOUTH ONCE DAILY WITH FOOD AND A FULL GLASS ?OF WATER; FORM STRENGTH 100 MILLIG...
     Route: 048
     Dates: end: 202510

REACTIONS (4)
  - Fall [Unknown]
  - Fatigue [Unknown]
  - Lethargy [Unknown]
  - Platelet count abnormal [Unknown]
